FAERS Safety Report 9614444 (Version 1)
Quarter: 2013Q4

REPORT INFORMATION
  Report Type: Spontaneous
  Country: US (occurrence: None)
  Receive Date: 20131009
  Receipt Date: 20131009
  Transmission Date: 20140711
  Serious: Yes (Hospitalization)
  Sender: FDA-Public Use
  Company Number: None

PATIENT
  Age: 17 Year
  Sex: Female
  Weight: 31.6 kg

DRUGS (5)
  1. TRI-PREVIFEM [Suspect]
     Indication: CONTRACEPTION
     Dosage: 1 PILL QD ORAL
     Route: 048
  2. TRI-PREVIFEM [Suspect]
     Indication: POLYCYSTIC OVARIES
     Dosage: 1 PILL QD ORAL
     Route: 048
  3. QVAR [Concomitant]
  4. ADDERALL [Concomitant]
  5. ALBUTEROL [Concomitant]

REACTIONS (2)
  - Chest pain [None]
  - Respiratory disorder [None]
